FAERS Safety Report 5933089-9 (Version None)
Quarter: 2008Q4

REPORT INFORMATION
  Report Type: 
  Country: None (occurrence: None)
  Receive Date: 20081028
  Receipt Date: 20081017
  Transmission Date: 20090506
  Serious: Yes (Hospitalization, Other)
  Sender: FDA-Public Use
  Company Number: SE-JNJFOC-20081004985

PATIENT
  Age: 68 Year
  Sex: Male

DRUGS (10)
  1. REMICADE [Suspect]
     Indication: DRUG USE FOR UNKNOWN INDICATION
     Route: 042
  2. FLUDENT [Concomitant]
  3. SALIVIN [Concomitant]
  4. METOPROLOL TARTRATE [Concomitant]
  5. SINCON [Concomitant]
     Route: 047
  6. VISCOTEARS [Concomitant]
  7. FOLACIN [Concomitant]
  8. ALVEDON [Concomitant]
  9. PROPAVAN [Concomitant]
  10. TRAMADOL HCL [Concomitant]
     Dosage: DOSE STATED AS 50-200 MG

REACTIONS (3)
  - ABDOMINAL PAIN [None]
  - AORTIC DILATATION [None]
  - ATRIAL FIBRILLATION [None]
